FAERS Safety Report 8999445 (Version 1)
Quarter: 2013Q1

REPORT INFORMATION
  Report Type: Spontaneous
  Country: US (occurrence: US)
  Receive Date: 20130103
  Receipt Date: 20130103
  Transmission Date: 20140127
  Serious: Yes (Other)
  Sender: FDA-Public Use
  Company Number: US-GLAXOSMITHKLINE-A1006825A

PATIENT
  Age: 52 Year
  Sex: Male
  Weight: 93 kg

DRUGS (1)
  1. EQUATE NTS 21MG [Suspect]
     Indication: SMOKING CESSATION THERAPY
     Dosage: 14MG UNKNOWN
     Route: 062
     Dates: start: 20121221, end: 20121227

REACTIONS (1)
  - Convulsion [Recovered/Resolved]
